FAERS Safety Report 5419898-3 (Version None)
Quarter: 2007Q3

REPORT INFORMATION
  Report Type: 
  Country: None (occurrence: None)
  Receive Date: 20070820
  Receipt Date: 20070808
  Transmission Date: 20080115
  Serious: Yes (Other)
  Sender: FDA-Public Use
  Company Number: FR-PFIZER INC-2007033169

PATIENT
  Age: 40 Year
  Sex: Male

DRUGS (2)
  1. CHAMPIX [Suspect]
  2. ELISOR [Concomitant]

REACTIONS (6)
  - ABNORMAL BEHAVIOUR [None]
  - ASTHENIA [None]
  - BLOOD CREATINE PHOSPHOKINASE INCREASED [None]
  - DISORIENTATION [None]
  - FEELING ABNORMAL [None]
  - SYNCOPE [None]
